FAERS Safety Report 4418004-1 (Version None)
Quarter: 2004Q3

REPORT INFORMATION
  Report Type: 
  Country: None (occurrence: None)
  Receive Date: 20040804
  Receipt Date: 20040720
  Transmission Date: 20050211
  Serious: Yes (Death)
  Sender: FDA-Public Use
  Company Number: 2004-BP-03645RA

PATIENT

DRUGS (3)
  1. VIRAMUNE [Suspect]
     Indication: HIV INFECTION
     Dosage: 200 MG, PO
     Route: 048
     Dates: start: 20040101
  2. ZIDOVUDINE [Suspect]
     Indication: HIV INFECTION
     Dosage: 300 MG (300 MG/D)
     Dates: start: 20040101
  3. LAMIVUDINE (LAMIVUDINE NOS) [Suspect]
     Indication: HIV INFECTION
     Dosage: 150 MG (150 MG/D)
     Dates: start: 20040101

REACTIONS (11)
  - ASCITES [None]
  - CARDIAC FAILURE [None]
  - CARDIOMEGALY [None]
  - DRUG EXPOSURE DURING PREGNANCY [None]
  - FOETAL DISORDER [None]
  - HEPATOSPLENOMEGALY [None]
  - HYDROPS FOETALIS [None]
  - INTRA-UTERINE DEATH [None]
  - POLYHYDRAMNIOS [None]
  - RENAL DISORDER [None]
  - UMBILICAL CORD ABNORMALITY [None]
